FAERS Safety Report 6086788-5 (Version None)
Quarter: 2009Q1

REPORT INFORMATION
  Report Type: 
  Country: None (occurrence: None)
  Receive Date: 20090223
  Receipt Date: 20090209
  Transmission Date: 20090719
  Serious: Yes (Other)
  Sender: FDA-Public Use
  Company Number: US-TYCO HEALTHCARE/MALLINCKRODT-T200900300

PATIENT
  Age: 70 Year
  Sex: Female
  Weight: 90.7 kg

DRUGS (9)
  1. RESTORIL [Suspect]
     Indication: INSOMNIA
  2. LUNESTA [Suspect]
     Indication: INSOMNIA
     Dosage: 2 MG, HS
     Route: 048
     Dates: start: 20080101
  3. LUNESTA [Suspect]
     Dosage: 3 MG, HS
     Route: 048
  4. ZOLPIDEM [Suspect]
     Indication: INSOMNIA
     Dosage: UNK
     Dates: start: 20070101, end: 20080101
  5. GLIPIZIDE [Concomitant]
     Dosage: UNK
  6. NEXIUM [Concomitant]
     Dosage: UNK
  7. ZETIA [Concomitant]
     Dosage: UNK
  8. ASPIRIN [Concomitant]
     Dosage: UNK
  9. (DECAMET.DITHIO)BIS(MET.PYRIDIN.) DITOSILATE [Concomitant]
     Dosage: UNK
     Dates: end: 20070101

REACTIONS (2)
  - CEREBROVASCULAR ACCIDENT [None]
  - DRUG EFFECT DECREASED [None]
